FAERS Safety Report 8030693-1 (Version None)
Quarter: 2012Q1

REPORT INFORMATION
  Report Type: 
  Country: None (occurrence: None)
  Receive Date: 20120105
  Receipt Date: 20111229
  Transmission Date: 20120608
  Serious: Yes (Death, Hospitalization)
  Sender: FDA-Public Use
  Company Number: 1000026623

PATIENT
  Age: 92 Year
  Sex: Male

DRUGS (13)
  1. ZYRTEC [Concomitant]
  2. DALIRESP [Suspect]
     Indication: CHRONIC OBSTRUCTIVE PULMONARY DISEASE
     Dosage: 500 MCG (500 MCG, 1 IN 1 D), ORAL
     Route: 048
     Dates: start: 20111223, end: 20111223
  3. SINGULAIR (MONTELUKAST SODIUM) (MONTELUKAST SODIUM) [Concomitant]
  4. COLACE (DOCUSATE SODIUM) (DOCUSATE SODIUM) [Concomitant]
  5. AMLODIPINE [Concomitant]
  6. DEXILANT (DEXLANSOPRAZOLE) (DEXLANSOPRAZOLE) [Concomitant]
  7. DILANTIN [Concomitant]
  8. SIMVASTATIN [Concomitant]
  9. ALBUTEROL (ALBUTEROL) (ALBUTEROL) [Concomitant]
  10. THEODUR (THEOPHYLLINE) (THEOPHYLLINE) [Concomitant]
  11. FLOMAX (TAMSULOSIN) (TAMSULOSIN) [Concomitant]
  12. SPIRIVA (TIOTROPIUM BROMIDE) (TIOTROPIUM BROMIDE) [Concomitant]
  13. SYMBICORT (BUDESONIDE, FORMOTEROL) (BUDESONIDE, FORMOTEROL) [Concomitant]

REACTIONS (2)
  - CARDIAC ARREST [None]
  - PANCREATITIS ACUTE [None]
